FAERS Safety Report 4842546-8 (Version None)
Quarter: 2005Q4

REPORT INFORMATION
  Report Type: 
  Country: None (occurrence: None)
  Receive Date: 20051201
  Receipt Date: 20051124
  Transmission Date: 20060501
  Serious: Yes (Death)
  Sender: FDA-Public Use
  Company Number: GB-JNJFOC-20051105774

PATIENT
  Sex: Female

DRUGS (1)
  1. HALOPERIDOL [Suspect]
     Indication: DRUG USE FOR UNKNOWN INDICATION
     Route: 050

REACTIONS (1)
  - DEATH [None]
